FAERS Safety Report 7891735-7 (Version None)
Quarter: 2011Q4

REPORT INFORMATION
  Report Type: 
  Country: None (occurrence: None)
  Receive Date: 20111103
  Receipt Date: 20110809
  Transmission Date: 20120403
  Serious: No
  Sender: FDA-Public Use
  Company Number: US-AMGEN-USASP2011040640

PATIENT
  Age: 77 Year
  Sex: Female

DRUGS (3)
  1. ENBREL [Suspect]
     Indication: RHEUMATOID ARTHRITIS
     Dosage: 50 MG, QWK
     Dates: start: 20000901, end: 20110730
  2. METHOTREXATE [Concomitant]
     Dosage: 2 MG, QWK
     Dates: start: 20000901
  3. PLAQUENIL [Concomitant]
     Dosage: UNK
     Dates: start: 19910101, end: 20101201

REACTIONS (2)
  - GLAUCOMA [None]
  - RETINAL DISORDER [None]
